FAERS Safety Report 7550492-4 (Version None)
Quarter: 2011Q2

REPORT INFORMATION
  Report Type: 
  Country: None (occurrence: None)
  Receive Date: 20110615
  Receipt Date: 20100407
  Transmission Date: 20111010
  Serious: Yes (Other)
  Sender: FDA-Public Use
  Company Number: DE-GENENTECH-299405

PATIENT
  Sex: Female

DRUGS (4)
  1. RANIBIZUMAB [Suspect]
     Dosage: UNK
     Route: 031
     Dates: start: 20090112
  2. RANIBIZUMAB [Suspect]
     Indication: AGE-RELATED MACULAR DEGENERATION
     Dosage: UNK
     Route: 031
     Dates: start: 20081215
  3. MULTIVITAMIN [Concomitant]
     Indication: PRODUCT USED FOR UNKNOWN INDICATION
  4. RANIBIZUMAB [Suspect]
     Dosage: UNK
     Route: 031
     Dates: start: 20090209

REACTIONS (3)
  - VITREOUS ADHESIONS [None]
  - METAMORPHOPSIA [None]
  - VISUAL ACUITY REDUCED [None]
